FAERS Safety Report 15551032 (Version 1)
Quarter: 2018Q4

REPORT INFORMATION
  Report Type: Spontaneous
  Country: US (occurrence: US)
  Receive Date: 20181025
  Receipt Date: 20181025
  Transmission Date: 20190205
  Serious: No
  Sender: FDA-Public Use
  Company Number: None

PATIENT
  Age: 39 Year
  Sex: Male
  Weight: 106.59 kg

DRUGS (5)
  1. VENTALIN [Concomitant]
  2. HYDROXYZINE HCL [Concomitant]
     Active Substance: HYDROXYZINE HYDROCHLORIDE
  3. CLARITON [Concomitant]
     Active Substance: UNSPECIFIED INGREDIENT
  4. EPIPEN [Suspect]
     Active Substance: EPINEPHRINE
     Indication: MULTIPLE ALLERGIES
     Dates: start: 20170210, end: 20170315
  5. BENADRYL [Concomitant]
     Active Substance: DIPHENHYDRAMINE HYDROCHLORIDE

REACTIONS (2)
  - Device malfunction [None]
  - Device failure [None]

NARRATIVE: CASE EVENT DATE: 20170210
